FAERS Safety Report 9230869 (Version 3)
Quarter: 2014Q1

REPORT INFORMATION
  Report Type: Report from Study
  Country: JP (occurrence: JP)
  Receive Date: 20130415
  Receipt Date: 20140321
  Transmission Date: 20141002
  Serious: Yes (Other)
  Sender: FDA-Public Use
  Company Number: PHHY2013JP005518

PATIENT
  Age: 28 Year
  Sex: Female
  Weight: 78 kg

DRUGS (38)
  1. LEPONEX / CLOZARIL [Suspect]
     Indication: SCHIZOPHRENIA
     Dosage: 12.5 MG, UNK
     Route: 048
     Dates: start: 20120918, end: 20120918
  2. LEPONEX / CLOZARIL [Suspect]
     Indication: SCHIZOPHRENIA, PARANOID TYPE
     Dosage: 25 MG, UNK
     Route: 048
     Dates: start: 20120919, end: 20120921
  3. LEPONEX / CLOZARIL [Suspect]
     Dosage: 50 MG, UNK
     Route: 048
     Dates: start: 20120922, end: 20120924
  4. LEPONEX / CLOZARIL [Suspect]
     Dosage: 75 MG, UNK
     Route: 048
     Dates: start: 20120925, end: 20120926
  5. LEPONEX / CLOZARIL [Suspect]
     Dosage: 100 MG, UNK
     Route: 048
     Dates: start: 20120927, end: 20120928
  6. LEPONEX / CLOZARIL [Suspect]
     Dosage: 125 MG, UNK
     Route: 048
     Dates: start: 20120929, end: 20121002
  7. LEPONEX / CLOZARIL [Suspect]
     Dosage: 150 MG, UNK
     Route: 048
     Dates: start: 20121003, end: 20121004
  8. LEPONEX / CLOZARIL [Suspect]
     Dosage: 175 MG, UNK
     Route: 048
     Dates: start: 20121005, end: 20121007
  9. LEPONEX / CLOZARIL [Suspect]
     Dosage: 200 MG, UNK
     Route: 048
     Dates: start: 20121008, end: 20121010
  10. LEPONEX / CLOZARIL [Suspect]
     Dosage: 250 MG, UNK
     Route: 048
     Dates: start: 20121011, end: 20121013
  11. LEPONEX / CLOZARIL [Suspect]
     Dosage: 300 MG
     Route: 048
     Dates: start: 20121014, end: 20121112
  12. LEPONEX / CLOZARIL [Suspect]
     Dosage: 200 MG
     Route: 048
     Dates: start: 20121113, end: 20130110
  13. LEPONEX / CLOZARIL [Suspect]
     Dosage: 100 MG
     Route: 048
     Dates: start: 20130111, end: 20130117
  14. JZOLOFT [Concomitant]
     Indication: SCHIZOPHRENIA
     Dosage: 100 MG, UNK
     Route: 048
     Dates: start: 20121214, end: 20130317
  15. PARIET [Concomitant]
     Indication: PROPHYLAXIS
     Dosage: 20 MG, UNK
     Route: 048
     Dates: start: 20100402, end: 20121227
  16. NEXIUM 1-2-3 [Concomitant]
     Indication: PROPHYLAXIS
     Dosage: 20 MG, UNK
     Route: 048
     Dates: start: 20121228
  17. INDERAL [Concomitant]
     Dosage: 20 MG, UNK
     Route: 048
     Dates: start: 20121214, end: 20130221
  18. HIRNAMIN [Concomitant]
     Indication: SCHIZOPHRENIA
     Dosage: 50 MG, UNK
     Route: 048
     Dates: start: 20130125
  19. HIRNAMIN [Concomitant]
     Dosage: 150 MG, UNK
     Route: 048
  20. HIRNAMIN [Concomitant]
     Dosage: 100 MG, UNK
     Route: 048
     Dates: end: 20130324
  21. LONASEN [Concomitant]
     Indication: SCHIZOPHRENIA
     Dosage: 24 MG, UNK
     Route: 048
     Dates: start: 20130215
  22. LONASEN [Concomitant]
     Dosage: 16 MG, UNK
     Route: 048
  23. LONASEN [Concomitant]
     Dosage: 8 MG, UNK
     Route: 048
     Dates: end: 20130317
  24. IMPROMEN [Concomitant]
     Indication: SCHIZOPHRENIA
     Dosage: 4 MG, UNK
     Route: 048
     Dates: start: 20130222
  25. IMPROMEN [Concomitant]
     Dosage: 7 MG, UNK
     Route: 048
  26. IMPROMEN [Concomitant]
     Dosage: 9 MG, UNK
     Route: 048
  27. ARIPIPRAZOLE [Concomitant]
     Dosage: 3 MG, UNK
     Route: 048
     Dates: start: 20080107, end: 20090603
  28. LEVOMEPROMAZINE [Concomitant]
     Dosage: 150 MG, UNK
     Dates: start: 20120720
  29. LEVOMEPROMAZINE [Concomitant]
     Dosage: 125 MG, UNK
  30. LEVOMEPROMAZINE [Concomitant]
     Dosage: 100 MG, UNK
  31. LEVOMEPROMAZINE [Concomitant]
     Dosage: 50 MG, UNK
     Dates: end: 20121022
  32. RIVOTRIL [Concomitant]
     Indication: SCHIZOPHRENIA, PARANOID TYPE
     Dosage: 5 MG, UNK
     Route: 048
     Dates: start: 20121016
  33. RIVOTRIL [Concomitant]
     Dosage: 1 MG, UNK
     Route: 048
  34. RIVOTRIL [Concomitant]
     Dosage: 2 MG, UNK
     Route: 048
     Dates: end: 20121105
  35. KOBALNON [Concomitant]
     Indication: PROPHYLAXIS
     Dosage: 150 MG, UNK
     Route: 048
     Dates: start: 20120511, end: 20121105
  36. REBAMIPIDE [Concomitant]
     Indication: PROPHYLAXIS
     Dosage: 300 MG, UNK
     Route: 048
     Dates: start: 20120905, end: 20121105
  37. AKINETON [Concomitant]
     Indication: PROPHYLAXIS
     Dosage: 2 MG, UNK
     Route: 048
     Dates: start: 20100107
  38. AKINETON [Concomitant]
     Dosage: 1 MG, UNK
     Route: 048
     Dates: end: 20121119

REACTIONS (8)
  - Convulsion [Recovering/Resolving]
  - Loss of consciousness [Unknown]
  - Grand mal convulsion [Unknown]
  - Tremor [Not Recovered/Not Resolved]
  - Salivary hypersecretion [Not Recovered/Not Resolved]
  - Heart rate increased [Unknown]
  - White blood cell count increased [Unknown]
  - Eosinophil count increased [Unknown]
